FAERS Safety Report 4520933-5 (Version None)
Quarter: 2004Q4

REPORT INFORMATION
  Report Type: 
  Country: None (occurrence: None)
  Receive Date: 20041208
  Receipt Date: 20041126
  Transmission Date: 20050328
  Serious: Yes (Other)
  Sender: FDA-Public Use
  Company Number: PHFR2004GB04411

PATIENT
  Age: 35 Year
  Sex: Male

DRUGS (1)
  1. CLOZARIL [Suspect]
     Indication: SCHIZOPHRENIA
     Dates: start: 19950912

REACTIONS (5)
  - ATRIAL FLUTTER [None]
  - DIZZINESS [None]
  - INFECTION [None]
  - SYNCOPE [None]
  - TACHYCARDIA [None]
